FAERS Safety Report 23472610 (Version 1)
Quarter: 2024Q1

REPORT INFORMATION
  Report Type: Spontaneous
  Country: JP (occurrence: JP)
  Receive Date: 20240202
  Receipt Date: 20240202
  Transmission Date: 20240410
  Serious: Yes (Disabling, Other)
  Sender: FDA-Public Use
  Company Number: JP-009507513-2401JPN016950

PATIENT
  Sex: Female

DRUGS (1)
  1. VORINOSTAT [Suspect]
     Active Substance: VORINOSTAT
     Indication: Epstein-Barr virus associated lymphoma
     Route: 048

REACTIONS (3)
  - Brain stem stroke [Unknown]
  - Drug intolerance [Unknown]
  - Product use in unapproved indication [Unknown]
